FAERS Safety Report 5630059-5 (Version None)
Quarter: 2008Q1

REPORT INFORMATION
  Report Type: 
  Country: None (occurrence: None)
  Receive Date: 20080218
  Receipt Date: 20080211
  Transmission Date: 20080703
  Serious: Yes (Life-Threatening, Other)
  Sender: FDA-Public Use
  Company Number: PHNR2008AU00448

PATIENT
  Sex: Male

DRUGS (3)
  1. BASILIXIMAB [Suspect]
     Indication: LUNG TRANSPLANT
     Route: 065
     Dates: start: 20070101
  2. CYCLOSPORINE [Concomitant]
     Indication: LUNG TRANSPLANT
     Route: 042
  3. METHYLPREDNISOLONE [Suspect]
     Indication: LUNG TRANSPLANT
     Route: 042

REACTIONS (10)
  - ANAPHYLACTIC REACTION [None]
  - CARDIAC ARREST [None]
  - CARDIOPULMONARY BYPASS [None]
  - DIALYSIS [None]
  - HYPOTENSION [None]
  - HYPOVOLAEMIA [None]
  - PLEURAL HAEMORRHAGE [None]
  - RENAL FAILURE [None]
  - RESUSCITATION [None]
  - TRANSFUSION [None]
